FAERS Safety Report 10580461 (Version 2)
Quarter: 2014Q4

REPORT INFORMATION
  Report Type: Spontaneous
  Country: JP (occurrence: JP)
  Receive Date: 20141113
  Receipt Date: 20141217
  Transmission Date: 20150529
  Serious: Yes (Other)
  Sender: FDA-Public Use
  Company Number: JP-ROCHE-1489097

PATIENT
  Sex: Male

DRUGS (5)
  1. 5-FU [Concomitant]
     Active Substance: FLUOROURACIL
     Indication: COLON CANCER
     Dosage: ONE COURSE?DOSAGE IS UNCERTAIN.
     Route: 040
     Dates: start: 20140902, end: 20141007
  2. 5-FU [Concomitant]
     Active Substance: FLUOROURACIL
     Indication: COLON CANCER
     Dosage: ONE COURSE?DOSAGE IS UNCERTAIN.
     Route: 041
     Dates: start: 20140902, end: 20141007
  3. IRINOTECAN HYDROCHLORIDE TRIHYDRATE [Concomitant]
     Active Substance: IRINOTECAN HYDROCHLORIDE
     Indication: COLON CANCER
     Dosage: ONE COURSE?DOSAGE IS UNCERTAIN.
     Route: 041
     Dates: start: 20140902, end: 20141007
  4. CALCIUM LEVOFOLINATE [Concomitant]
     Active Substance: LEVOLEUCOVORIN CALCIUM
     Indication: COLON CANCER
     Dosage: ONE COURSE?DOSAGE IS UNCERTAIN.
     Route: 041
     Dates: start: 20140902, end: 20141007
  5. AVASTIN [Suspect]
     Active Substance: BEVACIZUMAB
     Indication: COLON CANCER
     Dosage: ONE COURSE?DOSAGE IS UNCERTAIN.
     Route: 041
     Dates: start: 20140902, end: 20141007

REACTIONS (3)
  - Cerebral atrophy [Unknown]
  - Dementia Alzheimer^s type [Unknown]
  - Cognitive disorder [Recovering/Resolving]
